FAERS Safety Report 19158796 (Version 2)
Quarter: 2021Q2

REPORT INFORMATION
  Report Type: Spontaneous
  Country: US (occurrence: US)
  Receive Date: 20210420
  Receipt Date: 20210517
  Transmission Date: 20210717
  Serious: Yes (Hospitalization, Other)
  Sender: FDA-Public Use
  Company Number: US-PFIZER INC-2021391210

PATIENT
  Age: 79 Year
  Sex: Female
  Weight: 70.76 kg

DRUGS (4)
  1. MEDROL [Concomitant]
     Active Substance: METHYLPREDNISOLONE
     Dosage: UNK
     Route: 048
     Dates: start: 20210325, end: 20210402
  2. SYNTHROID [Concomitant]
     Active Substance: LEVOTHYROXINE SODIUM
     Indication: THYROID DISORDER
     Dosage: 88 UG, DAILY
  3. TOZINAMERAN. [Suspect]
     Active Substance: TOZINAMERAN
     Indication: COVID-19 IMMUNISATION
     Dosage: 2ND DOSE, SINGLE
     Dates: start: 20210211, end: 20210211
  4. MEDROL [Concomitant]
     Active Substance: METHYLPREDNISOLONE
     Indication: SWELLING
     Dosage: 4 MG, FREQUENCY WAS DIFFERENT BASED ON
     Route: 048
     Dates: start: 20210308, end: 20210315

REACTIONS (20)
  - Dizziness [Unknown]
  - Pain in extremity [Unknown]
  - Arthralgia [Unknown]
  - Breast pain [Unknown]
  - Cold sweat [Unknown]
  - Breast swelling [Unknown]
  - Palpitations [Unknown]
  - Feeling hot [Unknown]
  - Joint swelling [Unknown]
  - Musculoskeletal discomfort [Recovering/Resolving]
  - Neck pain [Unknown]
  - Back pain [Recovering/Resolving]
  - Dyspnoea [Recovered/Resolved]
  - Pain [Recovering/Resolving]
  - Hyperhidrosis [Unknown]
  - Peripheral swelling [Unknown]
  - Fatigue [Unknown]
  - Headache [Recovered/Resolved]
  - Myalgia [Unknown]
  - Muscular weakness [Unknown]

NARRATIVE: CASE EVENT DATE: 2021
